FAERS Safety Report 21073558 (Version 1)
Quarter: 2022Q3

REPORT INFORMATION
  Report Type: Report from Study
  Country: CA (occurrence: CA)
  Receive Date: 20220713
  Receipt Date: 20220713
  Transmission Date: 20221027
  Serious: Yes (Other)
  Sender: FDA-Public Use
  Company Number: CA-GILEAD-2022-0585780

PATIENT
  Sex: Female

DRUGS (7)
  1. SACITUZUMAB GOVITECAN [Suspect]
     Active Substance: SACITUZUMAB GOVITECAN
     Indication: Triple negative breast cancer
     Dosage: 557 MG ON C1D1 AND C1D8
     Route: 042
     Dates: start: 20220511, end: 20220518
  2. SACITUZUMAB GOVITECAN [Suspect]
     Active Substance: SACITUZUMAB GOVITECAN
     Dosage: UNK DOSE ON C2D1
     Route: 042
     Dates: start: 20220608, end: 20220615
  3. TAXOL [Concomitant]
     Active Substance: PACLITAXEL
  4. LETROZOLE [Concomitant]
     Active Substance: LETROZOLE
  5. CAPECITABINE [Concomitant]
     Active Substance: CAPECITABINE
  6. DOXORUBICIN HYDROCHLORIDE [Concomitant]
     Active Substance: DOXORUBICIN HYDROCHLORIDE
  7. ERIBULIN [Concomitant]
     Active Substance: ERIBULIN

REACTIONS (2)
  - Palliative care [Unknown]
  - Inappropriate schedule of product administration [Recovered/Resolved]
